FAERS Safety Report 5153507-6 (Version None)
Quarter: 2006Q4

REPORT INFORMATION
  Report Type: 
  Country: None (occurrence: None)
  Receive Date: 20061117
  Receipt Date: 20061113
  Transmission Date: 20070319
  Serious: Yes (Death)
  Sender: FDA-Public Use
  Company Number: JP-MERCK-0611USA04197

PATIENT
  Age: 84 Year
  Sex: Female

DRUGS (5)
  1. PEPCID [Suspect]
     Route: 042
     Dates: start: 20061023, end: 20061105
  2. RADICUT [Suspect]
     Route: 042
     Dates: start: 20061023, end: 20061105
  3. DESLANOSIDE [Concomitant]
     Route: 042
     Dates: start: 20061023, end: 20061105
  4. HEPARIN SODIUM [Concomitant]
     Route: 042
     Dates: start: 20061023, end: 20061105
  5. CEFAZOLIN SODIUM [Concomitant]
     Route: 042
     Dates: start: 20061023, end: 20061105

REACTIONS (1)
  - RHABDOMYOLYSIS [None]
